FAERS Safety Report 11840491 (Version 1)
Quarter: 2015Q4

REPORT INFORMATION
  Report Type: Spontaneous
  Country: FR (occurrence: FR)
  Receive Date: 20151216
  Receipt Date: 20151216
  Transmission Date: 20160305
  Serious: Yes (Hospitalization)
  Sender: FDA-Public Use
  Company Number: FR-SA-2015SA209921

PATIENT
  Age: 72 Year
  Sex: Male

DRUGS (5)
  1. AMLOR [Concomitant]
     Active Substance: AMLODIPINE BESYLATE
  2. PERINDOPRIL [Concomitant]
     Active Substance: PERINDOPRIL
  3. LEVOTHYROX [Concomitant]
     Active Substance: LEVOTHYROXINE
  4. PLAVIX [Suspect]
     Active Substance: CLOPIDOGREL BISULFATE
     Route: 048
     Dates: end: 20150701
  5. KARDEGIC [Suspect]
     Active Substance: ASPIRIN LYSINE
     Route: 048

REACTIONS (1)
  - Anaemia [Unknown]

NARRATIVE: CASE EVENT DATE: 20150701
